FAERS Safety Report 8744223 (Version 2)
Quarter: 2013Q4

REPORT INFORMATION
  Report Type: Spontaneous
  Country: JP (occurrence: JP)
  Receive Date: 20120824
  Receipt Date: 20131031
  Transmission Date: 20140711
  Serious: Yes (Other)
  Sender: FDA-Public Use
  Company Number: JP-MERCK-1208JPN008702

PATIENT
  Sex: Female

DRUGS (3)
  1. GASTER [Suspect]
     Route: 048
  2. VESICARE [Suspect]
     Route: 048
  3. PLETAAL [Concomitant]

REACTIONS (2)
  - Electrocardiogram QT prolonged [Unknown]
  - Ventricular tachycardia [Unknown]
